FAERS Safety Report 5414234-0 (Version None)
Quarter: 2007Q3

REPORT INFORMATION
  Report Type: 
  Country: None (occurrence: None)
  Receive Date: 20070814
  Receipt Date: 20070802
  Transmission Date: 20080115
  Serious: Yes (Other)
  Sender: FDA-Public Use
  Company Number: NL-PFIZER INC-2007065284

PATIENT
  Sex: Male

DRUGS (1)
  1. CARDURA [Suspect]

REACTIONS (2)
  - HALLUCINATION [None]
  - HEADACHE [None]
